FAERS Safety Report 7744702-8 (Version None)
Quarter: 2011Q3

REPORT INFORMATION
  Report Type: 
  Country: None (occurrence: None)
  Receive Date: 20110912
  Receipt Date: 20110906
  Transmission Date: 20111222
  Serious: Yes (Other)
  Sender: FDA-Public Use
  Company Number: US-SANOFI-AVENTIS-2011SA058191

PATIENT
  Age: 54 Year
  Sex: Female
  Weight: 64 kg

DRUGS (1)
  1. PLAQUENIL [Suspect]
     Indication: RHEUMATOID ARTHRITIS
     Route: 048
     Dates: start: 20100101, end: 20110301

REACTIONS (1)
  - MULTIPLE MYELOMA [None]
